FAERS Safety Report 10057356 (Version 1)
Quarter: 2014Q2

REPORT INFORMATION
  Report Type: Spontaneous
  Country: GB (occurrence: GB)
  Receive Date: 20140403
  Receipt Date: 20140403
  Transmission Date: 20141212
  Serious: Yes (Hospitalization)
  Sender: FDA-Public Use
  Company Number: GB-BAXTER-2014BAX015615

PATIENT
  Age: 79 Year
  Sex: Male

DRUGS (8)
  1. CYCLOPHOSPHAMIDE TABLETS 50 MG [Suspect]
     Indication: PLASMA CELL MYELOMA
     Route: 048
     Dates: start: 20130925, end: 20140119
  2. DEXAMETHASONE [Suspect]
     Indication: PLASMA CELL MYELOMA
     Route: 048
     Dates: start: 20130925, end: 20140119
  3. VELCADE [Suspect]
     Indication: PLASMA CELL MYELOMA
     Route: 058
     Dates: start: 20130925, end: 20140119
  4. ALLOPURINOL [Concomitant]
     Indication: PRODUCT USED FOR UNKNOWN INDICATION
     Route: 048
  5. CIPROFLOXACIN [Concomitant]
     Indication: INFECTION PROPHYLAXIS
     Route: 048
  6. FLUCONAZOLE [Concomitant]
     Indication: PROPHYLAXIS
     Route: 048
  7. FUROSEMIDE [Concomitant]
     Indication: PRODUCT USED FOR UNKNOWN INDICATION
     Route: 065
  8. LAMIVUDINE [Concomitant]
     Indication: HEPATITIS B
     Route: 048

REACTIONS (1)
  - Diabetes mellitus [Recovered/Resolved with Sequelae]
